FAERS Safety Report 8353943-0 (Version None)
Quarter: 2012Q2

REPORT INFORMATION
  Report Type: 
  Country: None (occurrence: None)
  Receive Date: 20120511
  Receipt Date: 20120430
  Transmission Date: 20120825
  Serious: Yes (Hospitalization)
  Sender: FDA-Public Use
  Company Number: US-VIROPHARMA INCORPORATED-20120423CINRY2907

PATIENT
  Sex: Female

DRUGS (4)
  1. MULTI-VITAMINS [Concomitant]
     Indication: PREGNANCY
     Dosage: UNKNOWN
     Route: 048
  2. HEPARIN LOCK-FLUSH [Concomitant]
     Indication: PRODUCT USED FOR UNKNOWN INDICATION
     Route: 065
  3. CINRYZE [Suspect]
     Indication: HEREDITARY ANGIOEDEMA
     Dates: start: 20101101
  4. PHENOBARBITAL TAB [Concomitant]
     Indication: EPILEPSY
     Dosage: UNKNOWN

REACTIONS (2)
  - MATERNAL EXPOSURE DURING PREGNANCY [None]
  - UTERINE HAEMORRHAGE [None]
